FAERS Safety Report 6195928-9 (Version None)
Quarter: 2009Q2

REPORT INFORMATION
  Report Type: 
  Country: None (occurrence: None)
  Receive Date: 20090520
  Receipt Date: 20090506
  Transmission Date: 20091009
  Serious: Yes (Hospitalization)
  Sender: FDA-Public Use
  Company Number: FR-CELGENEUS-056-20785-08120435

PATIENT
  Sex: Female
  Weight: 65 kg

DRUGS (2)
  1. THALIDOMIDE [Suspect]
     Indication: MULTIPLE MYELOMA
     Route: 048
     Dates: end: 20070509
  2. THALIDOMIDE [Suspect]
     Route: 048

REACTIONS (2)
  - CARDIAC FAILURE [None]
  - INTRACARDIAC MASS [None]
